FAERS Safety Report 20144252 (Version 1)
Quarter: 2021Q4

REPORT INFORMATION
  Report Type: Spontaneous
  Country: GB (occurrence: GB)
  Receive Date: 20211203
  Receipt Date: 20211203
  Transmission Date: 20220303
  Serious: Yes (Hospitalization)
  Sender: FDA-Public Use
  Company Number: None

PATIENT
  Sex: Female

DRUGS (3)
  1. CARBOPLATIN [Suspect]
     Active Substance: CARBOPLATIN
     Dosage: NEXT DOSE DUE 26.4.21 ( FOR 3 COURSES)
     Route: 065
     Dates: start: 20210405
  2. PACLITAXEL [Suspect]
     Active Substance: PACLITAXEL
     Dosage: NEXT DOSE DUE 26.4.21 ( FOR 3 COURSES)
     Route: 065
     Dates: start: 20210405
  3. FOLIC ACID [Concomitant]
     Active Substance: FOLIC ACID
     Dosage: 1 DOSAGE FORMS DAILY; 112 TABLET
     Dates: start: 20210331

REACTIONS (1)
  - Neutropenic sepsis [Unknown]
